FAERS Safety Report 9355200 (Version 2)
Quarter: 2013Q4

REPORT INFORMATION
  Report Type: Spontaneous
  Country: TR (occurrence: TR)
  Receive Date: 20130619
  Receipt Date: 20131223
  Transmission Date: 20140711
  Serious: Yes (Hospitalization)
  Sender: FDA-Public Use
  Company Number: TR-VERTEX PHARMACEUTICALS INC-2013-007199

PATIENT
  Age: 34 Year
  Sex: Female

DRUGS (4)
  1. INCIVO [Suspect]
     Indication: HEPATITIS C
     Dosage: 1500 MG, TID, TABLET
     Route: 048
     Dates: end: 20130609
  2. INCIVO [Suspect]
     Dosage: 750 MG, TID, TABLET
     Route: 048
     Dates: start: 20130610
  3. PEGINTERFERON ALFA [Suspect]
     Indication: HEPATITIS C
     Dosage: DOSAGE FORM: INJECTION
     Route: 058
  4. RIBAVIRIN [Suspect]
     Indication: HEPATITIS C
     Dosage: DOSAGE FORM: UNSPECIFIED

REACTIONS (2)
  - Medication error [Recovered/Resolved]
  - Nausea [Recovered/Resolved]
